FAERS Safety Report 17150346 (Version 1)
Quarter: 2019Q4

REPORT INFORMATION
  Report Type: Spontaneous
  Country: US (occurrence: US)
  Receive Date: 20191120
  Receipt Date: 20191120
  Transmission Date: 20200122
  Serious: No
  Sender: FDA-Public Use
  Company Number: None

PATIENT
  Age: 65 Year
  Sex: Female

DRUGS (1)
  1. IBRANCE [Suspect]
     Active Substance: PALBOCICLIB
     Indication: PRODUCT USED FOR UNKNOWN INDICATION
     Dosage: ?          OTHER FREQUENCY:DAILY FOR 21 DAYS;?
     Route: 048
     Dates: start: 20191026

REACTIONS (7)
  - Anxiety [None]
  - Interstitial lung disease [None]
  - Vision blurred [None]
  - Apathy [None]
  - Dyspnoea [None]
  - Pneumonitis [None]
  - Fatigue [None]

NARRATIVE: CASE EVENT DATE: 20191026
